FAERS Safety Report 5029549-8 (Version None)
Quarter: 2006Q2

REPORT INFORMATION
  Report Type: 
  Country: None (occurrence: None)
  Receive Date: 20060620
  Receipt Date: 20060614
  Transmission Date: 20061013
  Serious: Yes (Hospitalization)
  Sender: FDA-Public Use
  Company Number: PHRM2006FR01788

PATIENT
  Age: 79 Year
  Sex: Female
  Weight: 52 kg

DRUGS (9)
  1. TEGRETOL [Suspect]
     Indication: NEURALGIA
     Dosage: 400 MG, QD
     Route: 048
     Dates: start: 20060505, end: 20060509
  2. NOCTAMID [Concomitant]
     Dosage: 1 DF, QD
     Route: 048
     Dates: start: 20060401
  3. TRANXENE [Concomitant]
     Dosage: 10 MG, BID
     Route: 048
  4. DITROPAN [Concomitant]
     Dosage: 2 DF/DAY
     Route: 048
  5. SECTRAL [Concomitant]
     Dosage: 100 MG, QD
     Route: 048
  6. DEROXAT [Concomitant]
     Dosage: 20 MG, QD
     Route: 048
  7. ASPIRIN [Concomitant]
  8. AMLOR [Concomitant]
  9. CORTANCYL [Concomitant]

REACTIONS (5)
  - FACE INJURY [None]
  - FALL [None]
  - MOUTH INJURY [None]
  - TOOTH DISORDER [None]
  - TRAUMATIC HAEMATOMA [None]
